FAERS Safety Report 8509087-8 (Version None)
Quarter: 2012Q3

REPORT INFORMATION
  Report Type: 
  Country: None (occurrence: None)
  Receive Date: 20120703
  Receipt Date: 20120627
  Transmission Date: 20120928
  Serious: Yes (Other)
  Sender: FDA-Public Use
  Company Number: 2012SP036077

PATIENT
  Age: 54 Year
  Sex: Female

DRUGS (1)
  1. NASONEX (MOMETASONE FUROATE) (50 MG) [Suspect]
     Indication: NASOPHARYNGITIS
     Dosage: 2 DF, QD
     Dates: start: 20110301, end: 20110501

REACTIONS (2)
  - PAROSMIA [None]
  - DYSGEUSIA [None]
